FAERS Safety Report 10482521 (Version 1)
Quarter: 2014Q3

REPORT INFORMATION
  Report Type: Spontaneous
  Country: KR (occurrence: KR)
  Receive Date: 20140929
  Receipt Date: 20140929
  Transmission Date: 20150326
  Serious: Yes (Other)
  Sender: FDA-Public Use
  Company Number: KR-WATSON-2014-21001

PATIENT
  Age: 6 Year
  Sex: Female

DRUGS (1)
  1. METHYLPREDNISOLONE (UNKNOWN) [Suspect]
     Active Substance: METHYLPREDNISOLONE
     Indication: ACUTE DISSEMINATED ENCEPHALOMYELITIS
     Dosage: 30 MG/KG, DAILY
     Route: 042

REACTIONS (2)
  - Drug withdrawal syndrome [Recovered/Resolved]
  - Optic neuritis [Recovered/Resolved]
